FAERS Safety Report 10014486 (Version 2)
Quarter: 2014Q2

REPORT INFORMATION
  Report Type: Spontaneous
  Country: BR (occurrence: BR)
  Receive Date: 20140317
  Receipt Date: 20140407
  Transmission Date: 20141212
  Serious: Yes (Other)
  Sender: FDA-Public Use
  Company Number: BR-TEVA-467703ISR

PATIENT
  Age: 44 Year
  Sex: Female
  Weight: 57 kg

DRUGS (3)
  1. COPAXONE [Suspect]
     Indication: MULTIPLE SCLEROSIS
     Dosage: 20 MILLIGRAM DAILY;
     Route: 058
     Dates: start: 20120803
  2. VENLAFAXINE [Concomitant]
     Indication: DEPRESSION
  3. SOTACOR [Concomitant]
     Indication: ARRHYTHMIA

REACTIONS (2)
  - Neurofibromatosis [Not Recovered/Not Resolved]
  - Meningioma [Not Recovered/Not Resolved]
